FAERS Safety Report 8605096-9 (Version None)
Quarter: 2012Q3

REPORT INFORMATION
  Report Type: 
  Country: None (occurrence: None)
  Receive Date: 20120820
  Receipt Date: 20120814
  Transmission Date: 20120928
  Serious: No
  Sender: FDA-Public Use
  Company Number: US-PFIZER INC-2012198818

PATIENT
  Age: 67 Year

DRUGS (4)
  1. CODEINE SULFATE [Suspect]
     Dosage: UNK
  2. POVIDONE-IODINE (FORMULA 47) [Suspect]
     Dosage: UNK
  3. VANCOMYCIN HCL [Suspect]
     Dosage: UNK
  4. MORPHINE SULFATE [Suspect]
     Dosage: UNK

REACTIONS (2)
  - RASH [None]
  - DRUG HYPERSENSITIVITY [None]
